FAERS Safety Report 6130672-5 (Version None)
Quarter: 2009Q1

REPORT INFORMATION
  Report Type: 
  Country: None (occurrence: None)
  Receive Date: 20090325
  Receipt Date: 20090317
  Transmission Date: 20090719
  Serious: Yes (Hospitalization)
  Sender: FDA-Public Use
  Company Number: CA-TEVA-188567USA

PATIENT
  Sex: Female
  Weight: 57.658 kg

DRUGS (4)
  1. AMOXICILLIN 250 MG + 500 MG CAPSULES [Suspect]
     Indication: TOOTH ABSCESS
     Route: 048
     Dates: start: 20090306, end: 20090312
  2. AMLODIPINE [Concomitant]
     Route: 048
  3. CALCIUM CARBONATE [Concomitant]
     Route: 048
  4. ALENDRONATE SODIUM [Concomitant]
     Route: 048

REACTIONS (1)
  - DYSKINESIA [None]
